FAERS Safety Report 24919421 (Version 2)
Quarter: 2025Q1

REPORT INFORMATION
  Report Type: Spontaneous
  Country: CN (occurrence: CN)
  Receive Date: 20250204
  Receipt Date: 20250206
  Transmission Date: 20250409
  Serious: Yes (Other)
  Sender: MERCK
  Company Number: CN-009507513-2501CHN011067

PATIENT
  Age: 26 Year
  Sex: Female

DRUGS (11)
  1. CASPOFUNGIN ACETATE [Suspect]
     Active Substance: CASPOFUNGIN ACETATE
     Indication: Evidence based treatment
     Dosage: 70 MG INITIAL DOSE ON DAY 1
     Dates: start: 20221028, end: 20221028
  2. CASPOFUNGIN ACETATE [Suspect]
     Active Substance: CASPOFUNGIN ACETATE
     Dosage: 50 MILLIGRAM, QD
     Dates: start: 20221029, end: 20221108
  3. MEROPENEM [Suspect]
     Active Substance: MEROPENEM
     Indication: Evidence based treatment
  4. MEROPENEM [Suspect]
     Active Substance: MEROPENEM
     Indication: Anti-infective therapy
  5. TEICOPLANIN [Suspect]
     Active Substance: TEICOPLANIN
     Indication: Evidence based treatment
  6. VANCOMYCIN [Suspect]
     Active Substance: VANCOMYCIN
     Indication: Anti-infective therapy
  7. NOREPINEPHRINE [Suspect]
     Active Substance: NOREPINEPHRINE
     Indication: Peripheral vascular disorder
  8. TERLIPRESSIN [Suspect]
     Active Substance: TERLIPRESSIN
     Indication: Peripheral vascular disorder
  9. METHYLENE BLUE [Suspect]
     Active Substance: METHYLENE BLUE
     Indication: Peripheral vascular disorder
  10. LEVOSIMENDAN [Suspect]
     Active Substance: LEVOSIMENDAN
     Indication: Cardiac disorder
  11. EPINEPHRINE [Suspect]
     Active Substance: EPINEPHRINE
     Indication: Cardiac disorder

REACTIONS (2)
  - Liver injury [Recovered/Resolved]
  - Maternal exposure during pregnancy [Recovered/Resolved]

NARRATIVE: CASE EVENT DATE: 20220101
